FAERS Safety Report 17056854 (Version 1)
Quarter: 2019Q4

REPORT INFORMATION
  Report Type: Spontaneous
  Country: FR (occurrence: FR)
  Receive Date: 20191121
  Receipt Date: 20191121
  Transmission Date: 20200122
  Serious: Yes (Hospitalization)
  Sender: FDA-Public Use
  Company Number: FR-BAXTER-2019BAX023789

PATIENT
  Age: 46 Year
  Sex: Female
  Weight: 87 kg

DRUGS (5)
  1. AZANTAC [Concomitant]
     Active Substance: RANITIDINE HYDROCHLORIDE
     Indication: PREMEDICATION
     Route: 042
     Dates: start: 20190718, end: 20190718
  2. DOXIL [Suspect]
     Active Substance: DOXORUBICIN HYDROCHLORIDE
     Indication: BREAST CANCER
     Dosage: IN TOTAL
     Route: 041
     Dates: start: 20190718, end: 20190718
  3. POLARAMINE [Concomitant]
     Active Substance: DEXCHLORPHENIRAMINE MALEATE
     Indication: PREMEDICATION
     Dosage: IN TOTAL
     Route: 042
     Dates: start: 20190718, end: 20190718
  4. METHYLPREDNISOLONE MYLAN [Concomitant]
     Active Substance: METHYLPREDNISOLONE
     Indication: PREMEDICATION
     Dosage: IN TOTAL
     Route: 042
     Dates: start: 20190718, end: 20190718
  5. ONDANSETRON HYDROCHLORIDE. [Concomitant]
     Active Substance: ONDANSETRON HYDROCHLORIDE
     Indication: PREMEDICATION
     Dosage: IN TOTAL
     Route: 042
     Dates: start: 20190718, end: 20190718

REACTIONS (6)
  - General physical health deterioration [Recovered/Resolved]
  - Abdominal pain [Recovered/Resolved]
  - Erythema [Recovered/Resolved]
  - Feeling cold [Recovered/Resolved]
  - Myalgia [Recovered/Resolved]
  - Infusion related reaction [Recovered/Resolved]

NARRATIVE: CASE EVENT DATE: 20190718
